FAERS Safety Report 22127822 (Version 1)
Quarter: 2023Q1

REPORT INFORMATION
  Report Type: Spontaneous
  Country: CO (occurrence: CO)
  Receive Date: 20230323
  Receipt Date: 20230323
  Transmission Date: 20230417
  Serious: No
  Sender: FDA-Public Use
  Company Number: CO-ALKEM LABORATORIES LIMITED-CO-ALKEM-2023-01840

PATIENT
  Age: 84 Year
  Sex: Female

DRUGS (2)
  1. LEVETIRACETAM [Suspect]
     Active Substance: LEVETIRACETAM
     Indication: Status epilepticus
     Dosage: 1000 MILLIGRAM, BID
     Route: 058
  2. MORPHINE [Concomitant]
     Active Substance: MORPHINE
     Indication: Product used for unknown indication
     Dosage: 2 MILLIGRAM, TID
     Route: 058

REACTIONS (3)
  - Localised oedema [Unknown]
  - Erythema [Unknown]
  - Off label use [Unknown]
